FAERS Safety Report 7829148-6 (Version None)
Quarter: 2011Q4

REPORT INFORMATION
  Report Type: 
  Country: None (occurrence: None)
  Receive Date: 20111020
  Receipt Date: 20111006
  Transmission Date: 20120403
  Serious: Yes (Death, Other)
  Sender: FDA-Public Use
  Company Number: PHHY2011NL82881

PATIENT
  Sex: Female
  Weight: 58 kg

DRUGS (10)
  1. ZOLEDRONOC ACID [Suspect]
     Indication: OSTEOPOROSIS
     Dosage: 5 MG/ 100 ML
     Route: 042
     Dates: start: 20110722
  2. TRAMADOL HYDROCHLORIDE [Concomitant]
     Dosage: 150 MG,
  3. NEXIUM [Concomitant]
     Dosage: 2X40
  4. ACETAMINOPHEN [Concomitant]
     Dosage: 4 G,
  5. PREDNISONE [Concomitant]
     Dosage: 5 MG,
  6. LORAZEPAM [Concomitant]
     Dosage: 1 MG,
  7. AMITRIPTYLINE HCL [Concomitant]
  8. BUMETANIDE [Concomitant]
     Dosage: 2 MG,
  9. PERINDOPRIL ERBUMINE [Concomitant]
     Dosage: 2 MG,
  10. ALDACTONE [Concomitant]
     Dosage: 25 MG,

REACTIONS (14)
  - CARDIAC DISORDER [None]
  - CARDIAC FAILURE [None]
  - RENAL FAILURE [None]
  - HYPOTENSION [None]
  - SYNCOPE [None]
  - C-REACTIVE PROTEIN INCREASED [None]
  - BLOOD CREATININE INCREASED [None]
  - BLOOD SODIUM DECREASED [None]
  - EJECTION FRACTION DECREASED [None]
  - PNEUMONIA [None]
  - BLOOD POTASSIUM INCREASED [None]
  - HAEMOGLOBIN DECREASED [None]
  - GAMMA-GLUTAMYLTRANSFERASE INCREASED [None]
  - ANURIA [None]
